FAERS Safety Report 18614079 (Version 2)
Quarter: 2020Q4

REPORT INFORMATION
  Report Type: Spontaneous
  Country: DE (occurrence: DE)
  Receive Date: 20201214
  Receipt Date: 20201224
  Transmission Date: 20210114
  Serious: Yes (Other)
  Sender: FDA-Public Use
  Company Number: DE-BAUSCH-BL-2020-035709

PATIENT
  Age: 60 Year
  Sex: Female

DRUGS (43)
  1. LIPOTALON [Suspect]
     Active Substance: DEXAMETHASONE PALMITATE
     Dosage: 1 DOSAGE FORM, SINGLE; RIGHT KNEE, 1 TOTAL
     Route: 014
     Dates: start: 20181106, end: 20181106
  2. LIPOTALON [Suspect]
     Active Substance: DEXAMETHASONE PALMITATE
     Dosage: 1 DOSAGE FORM, SINGLE; RIGHT KNEE, 1 TOTAL
     Route: 014
     Dates: start: 20181102, end: 20181102
  3. MEAVERIN (MEPIVACAINE HYDROCHLORIDE) [Concomitant]
     Dosage: 1 DOSAGE FORM, SINGLE; BOTH KNEES AND FOOT, 1 TOTAL
     Route: 014
     Dates: start: 20181204, end: 20181204
  4. MEAVERIN (MEPIVACAINE HYDROCHLORIDE) [Concomitant]
     Dosage: 1 DOSAGE FORM, SINGLE; BOTH KNEES AND FOOT, 1 TOTAL
     Route: 014
     Dates: start: 20181127, end: 20181127
  5. MEAVERIN (MEPIVACAINE HYDROCHLORIDE) [Concomitant]
     Dosage: 1 DOSAGE FORM, SINGLE; LEFT ELBOW, 1 TOTAL
     Route: 014
     Dates: start: 20181016, end: 20181016
  6. DICLOFENAC [Concomitant]
     Active Substance: DICLOFENAC
     Dosage: 1 MILLILITER, SINGLE, 1 TOTAL
     Route: 014
     Dates: start: 20181120, end: 20181120
  7. DEXAMETHASONE. [Suspect]
     Active Substance: DEXAMETHASONE
     Indication: EPICONDYLITIS
     Dosage: 1 DOSAGE FORM, SINGLE, 1 TOTAL
     Route: 014
     Dates: start: 20181120, end: 20181120
  8. DEXAMETHASONE. [Suspect]
     Active Substance: DEXAMETHASONE
     Indication: ARTHRALGIA
     Dosage: 1 DOSAGE FORM, SINGLE, 1 TOTAL
     Route: 014
     Dates: start: 20181019, end: 20181019
  9. DEXAMETHASONE. [Suspect]
     Active Substance: DEXAMETHASONE
     Dosage: 1 DOSAGE FORM, SINGLE, 1 TOTAL
     Route: 014
     Dates: start: 20181102, end: 20181102
  10. LIPOTALON [Suspect]
     Active Substance: DEXAMETHASONE PALMITATE
     Dosage: 1 DOSAGE FORM, SINGLE; RIGHT KNEE AND FOOT, 1 TOTAL
     Route: 014
     Dates: start: 20181113, end: 20181113
  11. PREDNISOLONE. [Suspect]
     Active Substance: PREDNISOLONE
     Indication: EPICONDYLITIS
     Route: 048
     Dates: start: 201810
  12. MEAVERIN (MEPIVACAINE HYDROCHLORIDE) [Concomitant]
     Dosage: 1 DOSAGE FORM, SINGLE; LEFT ELBOW, 1 TOTAL
     Route: 014
     Dates: start: 20181019, end: 20181019
  13. MEAVERIN (MEPIVACAINE HYDROCHLORIDE) [Concomitant]
     Dosage: 1 DOSAGE FORM, SINGLE; RIGHT KNEE AND FOOT, 1 TOTAL
     Route: 014
     Dates: start: 20181120, end: 20181120
  14. DEXAMETHASONE. [Suspect]
     Active Substance: DEXAMETHASONE
     Dosage: 1 DOSAGE FORM, SINGLE, 1 TOTAL
     Route: 014
     Dates: start: 20181127, end: 20181127
  15. DEXAMETHASONE. [Suspect]
     Active Substance: DEXAMETHASONE
     Dosage: 1 DOSAGE FORM, SINGLE, 1 TOTAL
     Route: 014
     Dates: start: 20181106, end: 20181106
  16. LIPOTALON [Suspect]
     Active Substance: DEXAMETHASONE PALMITATE
     Dosage: 1 DOSAGE FORM, SINGLE; LEFT KNEE, 1 TOTAL
     Route: 014
     Dates: start: 20181130, end: 20181130
  17. HYALURON (HYALURONATE SODIUM) [Concomitant]
     Dosage: 1 DOSAGE FORM, SINGLE; RIGHT KNEE 1 TOTAL
     Route: 014
     Dates: start: 20181127, end: 20181127
  18. HYALURON (HYALURONATE SODIUM) [Concomitant]
     Dosage: 1 DOSAGE FORM, SINGLE; RIGHT KNEE, 1 TOTAL
     Route: 014
     Dates: start: 20181106, end: 20181106
  19. DICLOFENAC [Concomitant]
     Active Substance: DICLOFENAC
     Dosage: 1 MILLILITER, SINGLE, 1 TOTAL
     Route: 014
     Dates: start: 20181019, end: 20181019
  20. LIPOTALON [Suspect]
     Active Substance: DEXAMETHASONE PALMITATE
     Indication: EPICONDYLITIS
     Dosage: 1 DOSAGE FORM, SINGLE; BOTH KNEES AND FOOT, 1 TOTAL
     Route: 014
     Dates: start: 20181204, end: 20181204
  21. MEAVERIN (MEPIVACAINE HYDROCHLORIDE) [Concomitant]
     Dosage: 1 DOSAGE FORM, SINGLE; RIGHT KNEE, TOTAL
     Route: 014
     Dates: start: 20181106, end: 20181106
  22. LIPOTALON [Suspect]
     Active Substance: DEXAMETHASONE PALMITATE
     Dosage: 1 DOSAGE FORM, SINGLE; LEFT ELBOW, 1 TOTAL
     Route: 014
     Dates: start: 20181019, end: 20181019
  23. MEAVERIN (MEPIVACAINE HYDROCHLORIDE) [Concomitant]
     Indication: PRODUCT USED FOR UNKNOWN INDICATION
     Dosage: 1 DOSAGE FORM, SINGLE; RIGHT KNEE AND FOOT, 1 TOTAL
     Route: 014
     Dates: start: 20181113, end: 20181113
  24. DICLOFENAC [Concomitant]
     Active Substance: DICLOFENAC
     Dosage: 1 MILLILITER, SINGLE, 1 TOTAL
     Route: 014
     Dates: start: 20181130, end: 20181130
  25. DICLOFENAC [Concomitant]
     Active Substance: DICLOFENAC
     Dosage: 1 MILLILITER, SINGLE, 1 TOTAL
     Route: 014
     Dates: start: 20181113, end: 20181113
  26. LIPOTALON [Suspect]
     Active Substance: DEXAMETHASONE PALMITATE
     Dosage: 1 DOSAGE FORM, SINGLE; BOTH KNEES AND FOOT, 1 TOTAL
     Route: 014
     Dates: start: 20181127, end: 20181127
  27. LIPOTALON [Suspect]
     Active Substance: DEXAMETHASONE PALMITATE
     Dosage: 1 DOSAGE FORM, SINGLE; LEFT ELBOW, 1 TOTAL
     Route: 014
     Dates: start: 20181016, end: 20181016
  28. PREDNISOLONE. [Suspect]
     Active Substance: PREDNISOLONE
     Indication: ARTHRALGIA
     Dosage: 30 *20 MG
     Route: 048
     Dates: start: 20181204, end: 20181215
  29. HYALURON (HYALURONATE SODIUM) [Concomitant]
     Indication: PRODUCT USED FOR UNKNOWN INDICATION
     Dosage: 1 DOSAGE FORM, SINGLE; RIGHT KNEE, 1 TOTAL
     Route: 014
     Dates: start: 20181120, end: 20181120
  30. HYALURON (HYALURONATE SODIUM) [Concomitant]
     Dosage: 1 DOSAGE FORM, SINGLE; RIGHT KNEE, 1 TOTAL
     Route: 014
     Dates: start: 20181113, end: 20181113
  31. MEAVERIN (MEPIVACAINE HYDROCHLORIDE) [Concomitant]
     Dosage: 1 DOSAGE FORM, SINGLE; LEFT KNEE,1 TOTAL
     Route: 014
     Dates: start: 20181130, end: 20181130
  32. DEXAMETHASONE. [Suspect]
     Active Substance: DEXAMETHASONE
     Dosage: 1 DOSAGE FORM, SINGLE, 1 TOTAL
     Route: 014
     Dates: start: 20181016, end: 20181016
  33. DEXAMETHASONE. [Suspect]
     Active Substance: DEXAMETHASONE
     Dosage: 1 DOSAGE FORM, SINGLE, 1 TOTAL
     Route: 014
     Dates: start: 20181130, end: 20181130
  34. DEXAMETHASONE. [Suspect]
     Active Substance: DEXAMETHASONE
     Dosage: 1 DOSAGE FORM, SINGLE, 1 TOTAL
     Route: 014
     Dates: start: 20181113, end: 20181113
  35. LIPOTALON [Suspect]
     Active Substance: DEXAMETHASONE PALMITATE
     Indication: ARTHRALGIA
     Dosage: 1 DOSAGE FORM, SINGLE; RIGHT KNEE AND FOOT, 4MG INJECTION SOLUTION, 1 TOTAL
     Route: 014
     Dates: start: 20181120, end: 20181120
  36. DICLOFENAC [Concomitant]
     Active Substance: DICLOFENAC
     Indication: PRODUCT USED FOR UNKNOWN INDICATION
     Dosage: 1 MILLILITER, SINGLE, 1 TOTAL
     Route: 014
     Dates: start: 20181016, end: 20181016
  37. DICLOFENAC [Concomitant]
     Active Substance: DICLOFENAC
     Dosage: 1 MILLILITER, SINGLE, 1 TOTAL
     Route: 014
     Dates: start: 20181127, end: 20181127
  38. DICLOFENAC [Concomitant]
     Active Substance: DICLOFENAC
     Dosage: 1 MILLILITER, SINGLE, 1 TOTAL
     Route: 014
     Dates: start: 20181102, end: 20181102
  39. DICLOFENAC [Concomitant]
     Active Substance: DICLOFENAC
     Dosage: 1 MILLILITER, SINGLE, 1 TOTAL
     Route: 014
     Dates: start: 20181106, end: 20181106
  40. PREDNISOLONE. [Suspect]
     Active Substance: PREDNISOLONE
     Route: 048
     Dates: start: 201810
  41. PREDNISOLONE. [Suspect]
     Active Substance: PREDNISOLONE
     Route: 048
     Dates: start: 2018
  42. HYALURON (HYALURONATE SODIUM) [Concomitant]
     Dosage: 1 DOSAGE FORM, SINGLE; BOTH KNEES,1 TOTAL
     Route: 014
     Dates: start: 20181204, end: 20181204
  43. MEAVERIN (MEPIVACAINE HYDROCHLORIDE) [Concomitant]
     Dosage: 1 DOSAGE FORM, SINGLE; RIGHT KNEE
     Route: 014
     Dates: start: 20181102, end: 20181102

REACTIONS (20)
  - Dermatitis allergic [Not Recovered/Not Resolved]
  - Cystocele [Not Recovered/Not Resolved]
  - Influenza like illness [Not Recovered/Not Resolved]
  - Cushing^s syndrome [Not Recovered/Not Resolved]
  - Disturbance in attention [Not Recovered/Not Resolved]
  - Joint instability [Not Recovered/Not Resolved]
  - Nausea [Recovered/Resolved]
  - Muscular weakness [Not Recovered/Not Resolved]
  - Blood pressure increased [Not Recovered/Not Resolved]
  - Sleep disorder [Not Recovered/Not Resolved]
  - Emphysema [Not Recovered/Not Resolved]
  - Inappropriate schedule of product administration [Not Recovered/Not Resolved]
  - Arthralgia [Not Recovered/Not Resolved]
  - Hallucination [Not Recovered/Not Resolved]
  - Fluid retention [Not Recovered/Not Resolved]
  - Application site pain [Not Recovered/Not Resolved]
  - Pyrexia [Not Recovered/Not Resolved]
  - Blood glucose increased [Not Recovered/Not Resolved]
  - Pelvic floor muscle weakness [Not Recovered/Not Resolved]
  - Balance disorder [Not Recovered/Not Resolved]

NARRATIVE: CASE EVENT DATE: 2018
